FAERS Safety Report 8383853-4 (Version None)
Quarter: 2012Q2

REPORT INFORMATION
  Report Type: 
  Country: None (occurrence: None)
  Receive Date: 20120524
  Receipt Date: 20120515
  Transmission Date: 20120825
  Serious: Yes (Hospitalization)
  Sender: FDA-Public Use
  Company Number: US-ACTELION-A-US2012-65292

PATIENT

DRUGS (4)
  1. EPOPROSTENOL SODIUM [Suspect]
     Indication: PULMONARY ARTERIAL HYPERTENSION
     Dosage: 30 NG/KG, PER MIN
     Route: 042
     Dates: start: 20101208
  2. ACE INHIBITORS [Concomitant]
  3. TRACLEER [Concomitant]
     Indication: PULMONARY ARTERIAL HYPERTENSION
     Route: 048
  4. DIURETICS [Concomitant]

REACTIONS (1)
  - DEVICE DAMAGE [None]
